FAERS Safety Report 23259855 (Version 1)
Quarter: 2023Q4

REPORT INFORMATION
  Report Type: Spontaneous
  Country: FR (occurrence: FR)
  Receive Date: 20231204
  Receipt Date: 20231204
  Transmission Date: 20240109
  Serious: Yes (Other)
  Sender: FDA-Public Use
  Company Number: None

PATIENT
  Age: 66 Year
  Sex: Female

DRUGS (4)
  1. ROCURONIUM BROMIDE [Suspect]
     Active Substance: ROCURONIUM BROMIDE
     Indication: Local anaesthesia
     Dosage: DOSE UNKNOWN?ROUTE OF ADMIN.- INTRAVENOUS (NOT OTHERWISE SPECIFIED) ( INT )
     Route: 042
     Dates: start: 20231013, end: 20231013
  2. PROPOFOL [Suspect]
     Active Substance: PROPOFOL
     Indication: Local anaesthesia
     Dosage: DOSE UNKNOWN?ROUTE OF ADMIN.- INTRAVENOUS (NOT OTHERWISE SPECIFIED) ( INT ) ?FORM OF ADMIN. - 1FP
     Route: 042
     Dates: start: 20231013, end: 20231013
  3. KETAMINE [Suspect]
     Active Substance: KETAMINE
     Indication: Local anaesthesia
     Dosage: DOSE UNKNOWN?ROUTE OF ADMIN.- INTRAVENOUS (NOT OTHERWISE SPECIFIED) ( INT )
     Dates: start: 20231013, end: 20231013
  4. SUFENTANIL [Suspect]
     Active Substance: SUFENTANIL
     Indication: Local anaesthesia
     Dosage: DOSE UNKNOWN?ROUTE OF ADMIN.- INTRAVENOUS (NOT OTHERWISE SPECIFIED) ( INT )?FORM OF ADMIN. - 1FP
     Dates: start: 20231013, end: 20231013

REACTIONS (1)
  - Anaphylactic shock [Recovered/Resolved]

NARRATIVE: CASE EVENT DATE: 20231013
